FAERS Safety Report 20635753 (Version 1)
Quarter: 2022Q1

REPORT INFORMATION
  Report Type: Spontaneous
  Country: US (occurrence: None)
  Receive Date: 20220324
  Receipt Date: 20220324
  Transmission Date: 20220423
  Serious: Yes (Disabling)
  Sender: FDA-Public Use
  Company Number: None

PATIENT
  Age: 53 Year
  Sex: Female
  Weight: 72 kg

DRUGS (3)
  1. UBRELVY [Suspect]
     Active Substance: UBROGEPANT
     Indication: Migraine
     Dosage: FREQUENCY : AS NEEDED;?
     Route: 048
     Dates: start: 20211010, end: 20220320
  2. ESTRADIOL TRANSDERMAL SYSTEM [Concomitant]
     Active Substance: ESTRADIOL
  3. VITAMINS [Concomitant]
     Active Substance: VITAMINS

REACTIONS (9)
  - Back pain [None]
  - Neck pain [None]
  - Arthralgia [None]
  - Plantar fasciitis [None]
  - Pain in extremity [None]
  - Arthralgia [None]
  - Tendon disorder [None]
  - Muscle disorder [None]
  - Muscle strain [None]

NARRATIVE: CASE EVENT DATE: 20211130
